FAERS Safety Report 13965829 (Version 1)
Quarter: 2017Q3

REPORT INFORMATION
  Report Type: Spontaneous
  Country: ES (occurrence: ES)
  Receive Date: 20170913
  Receipt Date: 20170913
  Transmission Date: 20171128
  Serious: Yes (Other)
  Sender: FDA-Public Use
  Company Number: ES-SA-2017SA165571

PATIENT
  Sex: Female
  Weight: 50 kg

DRUGS (1)
  1. LANTUS [Suspect]
     Active Substance: INSULIN GLARGINE
     Indication: DIABETES MELLITUS
     Route: 058

REACTIONS (7)
  - Liver disorder [Unknown]
  - Weight decreased [Unknown]
  - Polyneuropathy [Unknown]
  - Cardiac disorder [Unknown]
  - Colon neoplasm [Unknown]
  - Foot fracture [Recovering/Resolving]
  - Pain in extremity [Unknown]
